FAERS Safety Report 16042356 (Version 1)
Quarter: 2019Q1

REPORT INFORMATION
  Report Type: Spontaneous
  Country: US (occurrence: US)
  Receive Date: 20190306
  Receipt Date: 20190306
  Transmission Date: 20190418
  Serious: No
  Sender: FDA-Public Use
  Company Number: US-AKORN PHARMACEUTICALS-2018AKN00900

PATIENT
  Sex: Male
  Weight: 81.63 kg

DRUGS (4)
  1. CLARAVIS [Suspect]
     Active Substance: ISOTRETINOIN
     Indication: ACNE CYSTIC
     Dosage: 30 MG, 2X/DAY
     Route: 048
     Dates: start: 20171115, end: 20171227
  2. CLARAVIS [Suspect]
     Active Substance: ISOTRETINOIN
     Indication: ACNE CYSTIC
     Dosage: 40 MG, 2X/DAY
     Route: 048
     Dates: start: 20171010, end: 20171115
  3. AMNESTEEM [Suspect]
     Active Substance: ISOTRETINOIN
     Indication: ACNE CYSTIC
     Dosage: 40 MG, 2X/DAY
     Dates: start: 20180209, end: 20180507
  4. MYORISAN [Suspect]
     Active Substance: ISOTRETINOIN
     Indication: ACNE CYSTIC
     Dosage: 40 MG, 2X/DAY
     Route: 048
     Dates: start: 20171227, end: 20180507

REACTIONS (4)
  - Total cholesterol/HDL ratio increased [Unknown]
  - High density lipoprotein decreased [Unknown]
  - Non-high-density lipoprotein cholesterol increased [Unknown]
  - Blood triglycerides increased [Unknown]
